FAERS Safety Report 24212032 (Version 1)
Quarter: 2024Q3

REPORT INFORMATION
  Report Type: Spontaneous
  Country: CH (occurrence: CH)
  Receive Date: 20240815
  Receipt Date: 20240815
  Transmission Date: 20241016
  Serious: Yes (Hospitalization)
  Sender: JOHNSON AND JOHNSON
  Company Number: None

PATIENT
  Age: 69 Year
  Sex: Female

DRUGS (22)
  1. RISPERDAL [Interacting]
     Active Substance: RISPERIDONE
     Indication: Product used for unknown indication
     Dosage: 1-0-1,
     Route: 065
     Dates: start: 202402, end: 20240614
  2. RISPERDAL [Interacting]
     Active Substance: RISPERIDONE
     Dosage: CURRENTLY SLOW REDUCTION SINCE 14-JUN-2024
     Route: 065
     Dates: start: 20240614
  3. VIMPAT [Interacting]
     Active Substance: LACOSAMIDE
     Indication: Partial seizures
     Dosage: 1-0-1
     Route: 048
     Dates: start: 20221108, end: 202402
  4. VIMPAT [Interacting]
     Active Substance: LACOSAMIDE
     Indication: Partial seizures
     Dosage: 1-0-1
     Route: 065
     Dates: start: 202402, end: 20240612
  5. VIMPAT [Interacting]
     Active Substance: LACOSAMIDE
     Indication: Partial seizures
     Dosage: 1-0-1
     Route: 065
     Dates: start: 20240613
  6. LAMOTRIGINE [Concomitant]
     Active Substance: LAMOTRIGINE
     Indication: Product used for unknown indication
     Route: 065
     Dates: start: 202208, end: 20221106
  7. LAMOTRIGINE [Concomitant]
     Active Substance: LAMOTRIGINE
     Route: 048
     Dates: start: 20221107, end: 202401
  8. LAMOTRIGINE [Concomitant]
     Active Substance: LAMOTRIGINE
     Dates: start: 202402
  9. KEPPRA [Concomitant]
     Active Substance: LEVETIRACETAM
     Indication: Product used for unknown indication
     Dates: end: 20220628
  10. KEPPRA [Concomitant]
     Active Substance: LEVETIRACETAM
     Dates: start: 20220628
  11. PERINDOPRIL [Concomitant]
     Active Substance: PERINDOPRIL
     Indication: Product used for unknown indication
     Dosage: 1-0-1
  12. AMLODIPINE [Concomitant]
     Active Substance: AMLODIPINE BESYLATE
     Dosage: 1-0-0
     Route: 048
  13. ALDACTONE [Concomitant]
     Active Substance: SPIRONOLACTONE
     Dosage: 1-0-0
  14. ROSUVASTATIN CALCIUM [Concomitant]
     Active Substance: ROSUVASTATIN CALCIUM
     Dosage: 1-0-0
  15. EZETIMIBE [Concomitant]
     Active Substance: EZETIMIBE
     Dosage: 0-0-1
  16. ASPIRIN [Concomitant]
     Active Substance: ASPIRIN
     Dosage: 1-0-0
  17. PANTOZOL [Concomitant]
     Active Substance: PANTOPRAZOLE SODIUM
     Dosage: 1-0-0
  18. MAGNESIUM [Concomitant]
     Active Substance: MAGNESIUM
  19. VITAMIN B12 [Concomitant]
     Active Substance: CYANOCOBALAMIN
  20. CALCIUM [Concomitant]
     Active Substance: CALCIUM
  21. VITAMIN D3 [Concomitant]
     Active Substance: CHOLECALCIFEROL
  22. TRAMADOL [Concomitant]
     Active Substance: TRAMADOL\TRAMADOL HYDROCHLORIDE

REACTIONS (6)
  - Petit mal epilepsy [Recovering/Resolving]
  - Neurological decompensation [Recovering/Resolving]
  - Vomiting [Recovering/Resolving]
  - Extrapyramidal disorder [Recovering/Resolving]
  - Drug interaction [Recovering/Resolving]
  - Prescribed overdose [Recovered/Resolved]

NARRATIVE: CASE EVENT DATE: 20240201
